FAERS Safety Report 5535944-0 (Version None)
Quarter: 2007Q4

REPORT INFORMATION
  Report Type: 
  Country: None (occurrence: None)
  Receive Date: 20071206
  Receipt Date: 20070827
  Transmission Date: 20080405
  Serious: Yes (Other)
  Sender: FDA-Public Use
  Company Number: US-AMGEN-US238715

PATIENT
  Sex: Male

DRUGS (4)
  1. ENBREL [Suspect]
     Indication: RHEUMATOID ARTHRITIS
     Route: 058
     Dates: start: 19990201
  2. SULFASALAZINE [Concomitant]
     Dates: start: 19910101
  3. METHOTREXATE [Concomitant]
     Dates: start: 19920101
  4. PREDNISONE TAB [Concomitant]
     Dates: start: 19920101

REACTIONS (3)
  - INJECTION SITE BRUISING [None]
  - INJECTION SITE PAIN [None]
  - PROSTATE CANCER [None]
